FAERS Safety Report 10258965 (Version 1)
Quarter: 2014Q2

REPORT INFORMATION
  Report Type: Report from Study
  Country: TR (occurrence: TR)
  Receive Date: 20140625
  Receipt Date: 20140625
  Transmission Date: 20141212
  Serious: No
  Sender: FDA-Public Use
  Company Number: TR-US-EMD SERONO, INC.-7300819

PATIENT
  Sex: Female

DRUGS (3)
  1. REBIF [Suspect]
     Indication: MULTIPLE SCLEROSIS
     Dates: start: 20140325, end: 20140503
  2. TAMOL [Suspect]
     Indication: ANALGESIC THERAPY
  3. TAMOL [Suspect]
     Indication: PYREXIA

REACTIONS (1)
  - Headache [Recovered/Resolved]
